FAERS Safety Report 20366232 (Version 1)
Quarter: 2022Q1

REPORT INFORMATION
  Report Type: Other
  Country: US (occurrence: US)
  Receive Date: 20220123
  Receipt Date: 20220123
  Transmission Date: 20220423
  Serious: No
  Sender: FDA-Public Use
  Company Number: US-ACORDA-ACO_168742_2021

PATIENT
  Sex: Male

DRUGS (1)
  1. AMPYRA [Suspect]
     Active Substance: DALFAMPRIDINE
     Indication: Multiple sclerosis
     Dosage: 10 MILLIGRAM, BID
     Route: 048
     Dates: start: 201811, end: 202102

REACTIONS (5)
  - Condition aggravated [Unknown]
  - Pain in extremity [Unknown]
  - Secondary progressive multiple sclerosis [Unknown]
  - Gait disturbance [Unknown]
  - Back pain [Unknown]
